FAERS Safety Report 12558541 (Version 2)
Quarter: 2017Q4

REPORT INFORMATION
  Report Type: Spontaneous
  Country: JP (occurrence: JP)
  Receive Date: 20160714
  Receipt Date: 20171228
  Transmission Date: 20180320
  Serious: Yes (Hospitalization, Disabling)
  Sender: FDA-Public Use
  Company Number: JP-009507513-1607JPN005787

PATIENT
  Age: 61 Year
  Sex: Female

DRUGS (2)
  1. ESTRIEL [Suspect]
     Active Substance: ESTRIOL
     Route: 048
  2. DEXAMETHASONE. [Suspect]
     Active Substance: DEXAMETHASONE
     Dosage: UNK
     Route: 048
     Dates: start: 200207, end: 201507

REACTIONS (3)
  - Quadriplegia [Unknown]
  - Superior sagittal sinus thrombosis [Unknown]
  - Haemorrhagic cerebral infarction [Unknown]
